FAERS Safety Report 12679280 (Version 1)
Quarter: 2016Q3

REPORT INFORMATION
  Report Type: Spontaneous
  Country: US (occurrence: None)
  Receive Date: 20160823
  Receipt Date: 20160823
  Transmission Date: 20161109
  Serious: No
  Sender: FDA-Public Use
  Company Number: None

PATIENT
  Age: 44 Year
  Sex: Female
  Weight: 68.04 kg

DRUGS (2)
  1. MORPHINE SULFATE. [Concomitant]
     Active Substance: MORPHINE SULFATE
  2. FENTANYL TRANSDERMAL SYSTEM [Suspect]
     Active Substance: FENTANYL
     Indication: INTERVERTEBRAL DISC DEGENERATION
     Dosage: 30 PATCH(ES) 2 PATCHES/48 HRS APPLIED AS MEDICATED PATCH TO SKIN

REACTIONS (3)
  - Withdrawal syndrome [None]
  - Product formulation issue [None]
  - Product quality issue [None]

NARRATIVE: CASE EVENT DATE: 20160817
